FAERS Safety Report 10174544 (Version 2)
Quarter: 2014Q2

REPORT INFORMATION
  Report Type: Spontaneous
  Country: US (occurrence: US)
  Receive Date: 20140515
  Receipt Date: 20140620
  Transmission Date: 20141212
  Serious: No
  Sender: FDA-Public Use
  Company Number: US-PFIZER INC-2014132861

PATIENT
  Sex: Female

DRUGS (1)
  1. LYRICA [Suspect]
     Indication: ARTHRALGIA
     Dosage: UNK
     Dates: end: 201405

REACTIONS (2)
  - Pain [Unknown]
  - Wound [Unknown]
